FAERS Safety Report 7653355-9 (Version None)
Quarter: 2011Q3

REPORT INFORMATION
  Report Type: 
  Country: None (occurrence: None)
  Receive Date: 20110803
  Receipt Date: 20110802
  Transmission Date: 20111222
  Serious: Yes (Other)
  Sender: FDA-Public Use
  Company Number: CN-PFIZER INC-2011176361

PATIENT

DRUGS (1)
  1. ZYVOX [Suspect]
     Indication: CENTRAL NERVOUS SYSTEM INFECTION

REACTIONS (2)
  - CSF TEST ABNORMAL [None]
  - NAUSEA [None]
